FAERS Safety Report 9117556 (Version 1)
Quarter: 2013Q1

REPORT INFORMATION
  Report Type: Spontaneous
  Country: US (occurrence: US)
  Receive Date: 20130208
  Receipt Date: 20130208
  Transmission Date: 20140127
  Serious: No
  Sender: FDA-Public Use
  Company Number: US-PFIZER INC-2013051316

PATIENT
  Age: 64 Year
  Sex: Male
  Weight: 93.4 kg

DRUGS (4)
  1. LIPITOR [Suspect]
     Indication: BLOOD CHOLESTEROL INCREASED
     Dosage: 40 MG, DAILY
     Route: 048
  2. LIPITOR [Suspect]
     Dosage: 20 MG (40 MG TABLET SPLIT INTO HALF), DAILY
     Route: 048
     Dates: start: 201207, end: 201209
  3. LIPITOR [Suspect]
     Dosage: 40 MG, DAILY
     Route: 048
     Dates: start: 201209
  4. RAPAMUNE [Concomitant]
     Dosage: 2 MG DAILY ON TUESDAYS AND THURSDAYS AND 1 MG DAILY ON OTHER DAYS

REACTIONS (3)
  - Drug ineffective [Unknown]
  - Myalgia [Recovered/Resolved]
  - Arthralgia [Recovered/Resolved]
